FAERS Safety Report 5155843-6 (Version None)
Quarter: 2006Q4

REPORT INFORMATION
  Report Type: 
  Country: None (occurrence: None)
  Receive Date: 20061120
  Receipt Date: 20061120
  Transmission Date: 20070319
  Serious: Yes (Other)
  Sender: FDA-Public Use
  Company Number: None

PATIENT
  Age: 40 Year
  Sex: Female
  Weight: 68.0396 kg

DRUGS (2)
  1. LITHIUM CARBONATE [Suspect]
     Indication: BIPOLAR I DISORDER
     Dosage: 300MG  3 TIMES DAILY  ORALLY
     Route: 048
     Dates: start: 20060601
  2. XANAX [Concomitant]

REACTIONS (9)
  - CONFUSIONAL STATE [None]
  - CONSTIPATION [None]
  - DEHYDRATION [None]
  - FURUNCLE [None]
  - HALLUCINATION [None]
  - HALLUCINATION, AUDITORY [None]
  - INDIFFERENCE [None]
  - PANIC ATTACK [None]
  - RASH [None]
